FAERS Safety Report 14564153 (Version 1)
Quarter: 2018Q1

REPORT INFORMATION
  Report Type: Report from Study
  Country: US (occurrence: US)
  Receive Date: 20180222
  Receipt Date: 20180222
  Transmission Date: 20180509
  Serious: Yes (Hospitalization, Other)
  Sender: FDA-Public Use
  Company Number: PHEH2018US006053

PATIENT
  Sex: Female

DRUGS (1)
  1. COSENTYX [Suspect]
     Active Substance: SECUKINUMAB
     Indication: ANKYLOSING SPONDYLITIS
     Dosage: 300 MG, QW
     Route: 058

REACTIONS (14)
  - Visual impairment [Unknown]
  - Musculoskeletal stiffness [Unknown]
  - Chest pain [Unknown]
  - Dementia [Unknown]
  - Fibromyalgia [Unknown]
  - Pericardial disease [Unknown]
  - Back pain [Unknown]
  - Inflammation [Unknown]
  - Cardiac failure chronic [Unknown]
  - Pain [Unknown]
  - Cerebrovascular accident [Unknown]
  - Rash [Unknown]
  - Nausea [Unknown]
  - Feeling abnormal [Unknown]
